FAERS Safety Report 7200120-2 (Version None)
Quarter: 2010Q4

REPORT INFORMATION
  Report Type: 
  Country: None (occurrence: None)
  Receive Date: 20101228
  Receipt Date: 20101220
  Transmission Date: 20110411
  Serious: Yes (Other)
  Sender: FDA-Public Use
  Company Number: US-PERRIGO-10US011739

PATIENT
  Sex: Female
  Weight: 58.503 kg

DRUGS (7)
  1. CETIRIZINE 10MG 4H2 [Suspect]
     Indication: HYPERSENSITIVITY
     Dosage: 10 MG, QD
     Route: 048
     Dates: start: 20090901, end: 20100714
  2. CETIRIZINE 10MG 4H2 [Suspect]
     Dosage: 10 MG, QD
     Route: 048
     Dates: start: 20100718, end: 20100723
  3. NASONEX [Concomitant]
     Indication: HYPERSENSITIVITY
     Dosage: UNK, PRN
     Route: 045
  4. ADVAIR [Concomitant]
     Indication: ASTHMA
     Dosage: UNK, DAILY
     Route: 055
  5. MAXAIR [Concomitant]
     Indication: ASTHMA
     Dosage: UNK, PRN
     Route: 065
  6. FLEXERIL [Concomitant]
     Indication: BACK PAIN
     Dosage: UNKNOWN
  7. MACRODANTIN [Concomitant]
     Indication: CYSTITIS
     Dosage: UNKNOWN
     Route: 048
     Dates: start: 20100601, end: 20100601

REACTIONS (13)
  - ASTHENIA [None]
  - DEPRESSED MOOD [None]
  - DISSOCIATION [None]
  - DIZZINESS [None]
  - HYPERVENTILATION [None]
  - HYPOAESTHESIA [None]
  - HYPOAESTHESIA FACIAL [None]
  - HYPOAESTHESIA ORAL [None]
  - NERVOUSNESS [None]
  - PAIN [None]
  - PARAESTHESIA [None]
  - STRESS [None]
  - VERTIGO [None]
